FAERS Safety Report 5310025-X (Version None)
Quarter: 2007Q2

REPORT INFORMATION
  Report Type: 
  Country: None (occurrence: None)
  Receive Date: 20070427
  Receipt Date: 20070424
  Transmission Date: 20071010
  Serious: Yes (Hospitalization)
  Sender: FDA-Public Use
  Company Number: US-GLAXOSMITHKLINE-A0645852A

PATIENT
  Age: 49 Year
  Sex: Female
  Weight: 124 kg

DRUGS (2)
  1. LAPATINIB [Suspect]
     Indication: BREAST CANCER METASTATIC
     Dosage: 1250MG PER DAY
     Route: 048
     Dates: start: 20070307
  2. CAPECITABINE [Suspect]
     Indication: BREAST CANCER METASTATIC
     Dosage: 2150MG TWICE PER DAY
     Route: 048
     Dates: start: 20070307

REACTIONS (5)
  - DEHYDRATION [None]
  - DIARRHOEA [None]
  - FOOD POISONING [None]
  - NAUSEA [None]
  - PYREXIA [None]
